FAERS Safety Report 4380862-7 (Version None)
Quarter: 2004Q2

REPORT INFORMATION
  Report Type: 
  Country: None (occurrence: None)
  Receive Date: 20040616
  Receipt Date: 20040603
  Transmission Date: 20050107
  Serious: No
  Sender: FDA-Public Use
  Company Number: 04H-066-0263042-00

PATIENT

DRUGS (5)
  1. HALOTHANE 250ML (INHALATION ANESTHETIC) LIQUID [Suspect]
     Indication: ANAESTHESIA
     Dosage: SEE IMAGE/AT ANESTHESIA/DURING ANESTHESIA
     Route: 055
  2. VECURONIUM BROMIDE FOR INJECTION (VENCURONIUM BROMIDE) (VECURONIUM BRO [Concomitant]
  3. OXYGEN [Concomitant]
  4. GLUCOSE INJECTION [Concomitant]
  5. SODIUM CHLORIDE INJ [Concomitant]

REACTIONS (2)
  - ELECTROCARDIOGRAM ST SEGMENT DEPRESSION [None]
  - ELECTROCARDIOGRAM T WAVE INVERSION [None]
